FAERS Safety Report 5027294-6 (Version None)
Quarter: 2006Q2

REPORT INFORMATION
  Report Type: 
  Country: None (occurrence: None)
  Receive Date: 20060615
  Receipt Date: 20060531
  Transmission Date: 20061013
  Serious: Yes (Hospitalization)
  Sender: FDA-Public Use
  Company Number: GB-ABBOTT-06P-167-0334785-00

PATIENT
  Age: 65 Year
  Sex: Female

DRUGS (5)
  1. CLARITHROMYCIN [Suspect]
     Indication: HELICOBACTER INFECTION
  2. ZOTON CAPSULES [Suspect]
     Indication: HELICOBACTER INFECTION
  3. METRONIDAZOLE [Suspect]
     Indication: HELICOBACTER INFECTION
  4. ACETAMINOPHEN W/ PROPOXYPHENE HCL [Concomitant]
     Indication: DRUG USE FOR UNKNOWN INDICATION
  5. AZATHIOPRINE [Concomitant]
     Indication: RHEUMATOID ARTHRITIS

REACTIONS (11)
  - ACTIVATED PARTIAL THROMBOPLASTIN TIME [None]
  - ANOREXIA [None]
  - BONE MARROW FAILURE [None]
  - DRY MOUTH [None]
  - DYSPHAGIA [None]
  - INTERNATIONAL NORMALISED RATIO INCREASED [None]
  - NEUTROPHIL COUNT DECREASED [None]
  - PHARYNGITIS [None]
  - PLATELET COUNT DECREASED [None]
  - PYREXIA [None]
  - WEIGHT DECREASED [None]
